FAERS Safety Report 4688396-7 (Version None)
Quarter: 2005Q2

REPORT INFORMATION
  Report Type: 
  Country: None (occurrence: None)
  Receive Date: 20050609
  Receipt Date: 20050609
  Transmission Date: 20051028
  Serious: Yes (Death)
  Sender: FDA-Public Use
  Company Number: None

PATIENT
  Age: 84 Year
  Sex: Male
  Weight: 77 kg

DRUGS (2)
  1. ACTIVASE [Suspect]
     Indication: CEREBROVASCULAR ACCIDENT
     Dosage: DAY 1-7 MG AND 69 MG DAY 3 -30 MG
     Dates: start: 20050515, end: 20050517
  2. HEPARIN [Suspect]
     Indication: CEREBROVASCULAR ACCIDENT
     Dosage: HEPARIN DRIP TITRATED
     Route: 041
     Dates: start: 20050517

REACTIONS (1)
  - BRAIN STEM HAEMORRHAGE [None]
